FAERS Safety Report 5169311-9 (Version None)
Quarter: 2006Q4

REPORT INFORMATION
  Report Type: 
  Country: None (occurrence: None)
  Receive Date: 20061211
  Receipt Date: 20060811
  Transmission Date: 20070319
  Serious: Yes (Other)
  Sender: FDA-Public Use
  Company Number: CA-ELI_LILLY_AND_COMPANY-CA200608003004

PATIENT
  Age: 9 Year
  Sex: Male
  Weight: 24.9 kg

DRUGS (4)
  1. STRATTERA [Suspect]
     Indication: ATTENTION DEFICIT/HYPERACTIVITY DISORDER
     Dosage: 10 MG, UNK
     Dates: start: 20060201, end: 20060101
  2. STRATTERA [Suspect]
     Dosage: 18 MG, UNK
     Dates: start: 20060101, end: 20060101
  3. STRATTERA [Suspect]
     Dosage: 25 MG, UNK
     Dates: start: 20060101, end: 20060101
  4. STRATTERA [Suspect]
     Dosage: 18 MG, UNK
     Dates: start: 20060101, end: 20060810

REACTIONS (3)
  - FATIGUE [None]
  - MOOD SWINGS [None]
  - VIRAL HEPATITIS CARRIER [None]
